FAERS Safety Report 19682041 (Version 6)
Quarter: 2022Q1

REPORT INFORMATION
  Report Type: Report from Study
  Country: US (occurrence: US)
  Receive Date: 20210810
  Receipt Date: 20220227
  Transmission Date: 20220423
  Serious: Yes (Hospitalization)
  Sender: FDA-Public Use
  Company Number: US-ABBVIE-21P-163-4018695-00

PATIENT
  Age: 81 Year
  Sex: Female
  Weight: 66 kg

DRUGS (13)
  1. HUMIRA [Suspect]
     Active Substance: ADALIMUMAB
     Indication: Colitis ulcerative
     Route: 058
     Dates: start: 20130320, end: 20130513
  2. AZATHIOPRINE [Suspect]
     Active Substance: AZATHIOPRINE
     Indication: Colitis ulcerative
     Route: 048
     Dates: start: 20130508, end: 20140826
  3. AZATHIOPRINE [Suspect]
     Active Substance: AZATHIOPRINE
     Dosage: TUES, THUR, AND SATURDAY
     Route: 048
     Dates: start: 20140226, end: 20140826
  4. MERCAPTOPURINE [Suspect]
     Active Substance: MERCAPTOPURINE
     Indication: Colitis ulcerative
     Dosage: 1 TABLET 1 DAY/ WEEK. 0.5 TABLET 6 DAYS/WEEK
     Route: 048
     Dates: start: 20130508, end: 20191024
  5. OMEPRAZOLE [Concomitant]
     Active Substance: OMEPRAZOLE
     Indication: Gastrooesophageal reflux disease
     Route: 048
     Dates: start: 20131220
  6. ONDANSETRON [Concomitant]
     Active Substance: ONDANSETRON
     Indication: Nausea
     Dosage: AS REQUIRED
     Route: 048
     Dates: start: 20131220
  7. ENTYVIO [Concomitant]
     Active Substance: VEDOLIZUMAB
     Indication: Colitis ulcerative
     Route: 041
     Dates: start: 20140805
  8. VITAMINS [Concomitant]
     Active Substance: VITAMINS
     Indication: Nutritional supplementation
     Route: 048
     Dates: start: 20140612
  9. HYDROCORTISONE [Concomitant]
     Active Substance: HYDROCORTISONE
     Indication: Colitis ulcerative
     Dosage: 3 TIMES PER WEEK AS REQUIRED
     Route: 054
     Dates: start: 20150112
  10. CHONDROITIN [Concomitant]
     Active Substance: CHONDROITIN
     Indication: Arthralgia
     Route: 048
     Dates: start: 20161110
  11. CALCIUM [Concomitant]
     Active Substance: CALCIUM
     Indication: Nutritional supplementation
     Route: 048
     Dates: start: 20161110
  12. ZALEPLON [Concomitant]
     Active Substance: ZALEPLON
     Indication: Sleep study
     Dosage: 5-10 MG (MILLIGRAM(S) AS REQUIRED
     Route: 048
     Dates: start: 20180410
  13. LIALDA [Concomitant]
     Active Substance: MESALAMINE
     Indication: Colitis ulcerative
     Route: 048
     Dates: start: 20170518

REACTIONS (1)
  - Prostatitis [Recovered/Resolved]

NARRATIVE: CASE EVENT DATE: 20210715
